FAERS Safety Report 8602570-6 (Version None)
Quarter: 2012Q3

REPORT INFORMATION
  Report Type: 
  Country: None (occurrence: None)
  Receive Date: 20120817
  Receipt Date: 20120813
  Transmission Date: 20120928
  Serious: Yes (Hospitalization)
  Sender: FDA-Public Use
  Company Number: PHEH2012US015390

PATIENT
  Sex: Male
  Weight: 89.342 kg

DRUGS (1)
  1. GILENYA [Suspect]
     Indication: MULTIPLE SCLEROSIS
     Dosage: 0.5 MG, QD
     Route: 048
     Dates: start: 20120731

REACTIONS (10)
  - COUGH [None]
  - HYPERHIDROSIS [None]
  - MUSCLE RIGIDITY [None]
  - NAUSEA [None]
  - HEADACHE [None]
  - DIZZINESS [None]
  - DIARRHOEA [None]
  - VOMITING [None]
  - CONVULSION [None]
  - RASH MACULAR [None]
